FAERS Safety Report 9801778 (Version 1)
Quarter: 2014Q1

REPORT INFORMATION
  Report Type: Spontaneous
  Country: BR (occurrence: BR)
  Receive Date: 20140107
  Receipt Date: 20140107
  Transmission Date: 20141002
  Serious: Yes (Death, Hospitalization, Other)
  Sender: FDA-Public Use
  Company Number: PHHY2014BR001241

PATIENT
  Age: 86 Year
  Sex: Female
  Weight: 86 kg

DRUGS (6)
  1. EXELON PATCH [Suspect]
     Indication: DEMENTIA ALZHEIMER^S TYPE
     Dosage: 4.6 MG, IN EVERY 24 HOURS
     Route: 062
  2. EXELON PATCH [Suspect]
     Dosage: 9.5 MG, IN EVERY 24 HOURS
     Route: 062
  3. EXELON PATCH [Suspect]
     Dosage: 13.3 MG, IN EVERY 24 HOURS
     Route: 062
     Dates: start: 20131209
  4. EXELON [Suspect]
     Indication: DEMENTIA ALZHEIMER^S TYPE
     Dosage: 1 DF, DAILY
     Route: 048
  5. VERAPAMIL [Concomitant]
     Indication: HYPERTENSION
     Dosage: 1 DF, DAILY
     Route: 048
  6. ARADOIS [Concomitant]
     Indication: HYPERTENSION
     Dosage: 1 DF, AT NIGHT
     Route: 048

REACTIONS (3)
  - Respiratory tract infection [Fatal]
  - Depression [Unknown]
  - Drug administration error [Unknown]
